FAERS Safety Report 5157227-3 (Version None)
Quarter: 2006Q4

REPORT INFORMATION
  Report Type: 
  Country: None (occurrence: None)
  Receive Date: 20061127
  Receipt Date: 20061117
  Transmission Date: 20070319
  Serious: Yes (Other)
  Sender: FDA-Public Use
  Company Number: FI-JNJFOC-20061104611

PATIENT
  Sex: Male

DRUGS (7)
  1. RISPERDAL [Suspect]
     Indication: PSYCHOTIC DISORDER
     Route: 048
  2. PROPRAL [Concomitant]
     Dosage: 3+2+2
     Route: 065
  3. LINATIL [Concomitant]
     Indication: BLOOD PRESSURE
     Route: 065
  4. SPIRESIS [Concomitant]
     Indication: BLOOD PRESSURE
     Route: 065
  5. PROTAPHAN [Concomitant]
     Indication: DIABETES MELLITUS
     Dosage: 34+18 IU
     Route: 065
  6. SOMAC [Concomitant]
     Indication: GASTRIC DISORDER
     Route: 065
  7. PRIMPERAN TAB [Concomitant]
     Route: 065

REACTIONS (1)
  - PEMPHIGOID [None]
